FAERS Safety Report 5683257-9 (Version None)
Quarter: 2008Q1

REPORT INFORMATION
  Report Type: 
  Country: None (occurrence: None)
  Receive Date: 20080327
  Receipt Date: 20080317
  Transmission Date: 20080703
  Serious: Yes (Hospitalization)
  Sender: FDA-Public Use
  Company Number: GR-ABBOTT-08P-066-0442953-00

PATIENT
  Sex: Male
  Weight: 90 kg

DRUGS (2)
  1. HUMIRA [Suspect]
     Indication: ANKYLOSING SPONDYLITIS
     Route: 058
     Dates: start: 20040101, end: 20071010
  2. HUMIRA [Suspect]
     Dates: start: 20080225

REACTIONS (2)
  - INTERVERTEBRAL DISCITIS [None]
  - THORACIC VERTEBRAL FRACTURE [None]
